FAERS Safety Report 6423534-7 (Version None)
Quarter: 2009Q4

REPORT INFORMATION
  Report Type: 
  Country: None (occurrence: None)
  Receive Date: 20091102
  Receipt Date: 20090218
  Transmission Date: 20100525
  Serious: No
  Sender: FDA-Public Use
  Company Number: A0769863A

PATIENT
  Sex: Female

DRUGS (1)
  1. RYTHMOL SR [Suspect]
     Indication: DRUG USE FOR UNKNOWN INDICATION

REACTIONS (2)
  - DECREASED APPETITE [None]
  - WEIGHT DECREASED [None]
